FAERS Safety Report 7605078-X (Version None)
Quarter: 2011Q3

REPORT INFORMATION
  Report Type: 
  Country: None (occurrence: None)
  Receive Date: 20110713
  Receipt Date: 20091120
  Transmission Date: 20111222
  Serious: Yes (Other)
  Sender: FDA-Public Use
  Company Number: US-BAYER-200940944NA

PATIENT
  Age: 59 Year
  Sex: Male
  Weight: 108.84 kg

DRUGS (13)
  1. TRASYLOL [Suspect]
     Dosage: 50CC/HOUR
     Route: 042
     Dates: start: 20051010, end: 20051010
  2. NITROGLYCERIN [Concomitant]
     Dosage: 5 ?G, UNK
     Route: 042
     Dates: start: 20051005, end: 20051010
  3. TRASYLOL [Suspect]
     Indication: CORONARY ARTERY BYPASS
     Dosage: 200 ML, PUMP PRIME
     Route: 042
     Dates: start: 20051010, end: 20051010
  4. INSULIN [Concomitant]
     Dosage: 10-30 UNITS
     Route: 058
     Dates: start: 20051004, end: 20051010
  5. LOVENOX [Concomitant]
     Dosage: 100 MG, BID
     Route: 058
     Dates: start: 20051006, end: 20051010
  6. TRASYLOL [Suspect]
     Dosage: 250 ML, BOLUS
     Route: 042
     Dates: start: 20051010, end: 20051010
  7. LOPRESSOR [Concomitant]
     Dosage: 25 MG, EVERY 6 HOURS
     Route: 048
     Dates: start: 20051004, end: 20051010
  8. AMLODIPINE [Concomitant]
     Dosage: 5 MG, QD
     Route: 048
     Dates: start: 20051006, end: 20051010
  9. LIDOCAINE [Concomitant]
     Dosage: 5 MG, UNK
     Route: 042
     Dates: start: 20051010
  10. HEPARIN [Concomitant]
     Dosage: 10000-31000 UNITS
     Route: 042
     Dates: start: 20051010
  11. PROTAMINE SULFATE [Concomitant]
     Dosage: 350 MG, UNK
     Route: 042
     Dates: start: 20051010
  12. MANNITOL [Concomitant]
     Dosage: 50 G, UNK
     Route: 042
     Dates: start: 20051010
  13. ACETYLSALICYLIC ACID SRT [Concomitant]
     Dosage: 325 MG, QD
     Route: 048
     Dates: start: 20051004, end: 20051010

REACTIONS (12)
  - PAIN [None]
  - ANHEDONIA [None]
  - ANXIETY [None]
  - DISABILITY [None]
  - RENAL FAILURE [None]
  - RENAL FAILURE ACUTE [None]
  - FEAR [None]
  - MULTI-ORGAN FAILURE [None]
  - RENAL INJURY [None]
  - UNEVALUABLE EVENT [None]
  - INJURY [None]
  - DEPRESSION [None]
